FAERS Safety Report 8439714-5 (Version None)
Quarter: 2012Q2

REPORT INFORMATION
  Report Type: 
  Country: None (occurrence: None)
  Receive Date: 20120323
  Receipt Date: 20111108
  Transmission Date: 20120825
  Serious: Yes (Other)
  Sender: FDA-Public Use
  Company Number: 163-21880-11053852

PATIENT
  Age: 88 Year
  Sex: Female

DRUGS (10)
  1. VICODIN [Concomitant]
  2. ASPIRIN [Concomitant]
  3. COLACE (DOCUSATE SODIUM) [Concomitant]
  4. ACYCLOVIR [Concomitant]
  5. POTASSIUM CHLORIDE [Concomitant]
  6. LISINOPRIL [Concomitant]
  7. REVLIMID [Suspect]
     Indication: LYMPHOMA
     Dosage: 25 MG, DAILY FOR 21 DAYS, PO12.5 MG, 1 IN 2 D, PO 10 MG, D1-21, PO
     Route: 048
     Dates: start: 20110324
  8. REVLIMID [Suspect]
     Indication: LYMPHOMA
     Dosage: 25 MG, DAILY FOR 21 DAYS, PO12.5 MG, 1 IN 2 D, PO 10 MG, D1-21, PO
     Route: 048
     Dates: start: 20110421, end: 20110501
  9. REVLIMID [Suspect]
     Indication: LYMPHOMA
     Dosage: 25 MG, DAILY FOR 21 DAYS, PO12.5 MG, 1 IN 2 D, PO 10 MG, D1-21, PO
     Route: 048
     Dates: start: 20110520, end: 20110720
  10. ZOFRAN [Concomitant]

REACTIONS (4)
  - DISEASE PROGRESSION [None]
  - FATIGUE [None]
  - LYMPHOMA [None]
  - HAEMOGLOBIN DECREASED [None]
